FAERS Safety Report 11839346 (Version 1)
Quarter: 2015Q4

REPORT INFORMATION
  Report Type: Spontaneous
  Country: US (occurrence: US)
  Receive Date: 20151216
  Receipt Date: 20151216
  Transmission Date: 20160305
  Serious: Yes (Death)
  Sender: FDA-Public Use
  Company Number: US-JNJFOC-20151204799

PATIENT
  Age: 50 Year
  Sex: Female

DRUGS (1)
  1. SALICYLATE [Suspect]
     Active Substance: SALICYLIC ACID
     Indication: SUICIDE ATTEMPT
     Route: 048

REACTIONS (3)
  - Poisoning [None]
  - Toxicity to various agents [Fatal]
  - Completed suicide [None]
